FAERS Safety Report 5057754-3 (Version None)
Quarter: 2006Q3

REPORT INFORMATION
  Report Type: 
  Country: None (occurrence: None)
  Receive Date: 20060721
  Receipt Date: 20060206
  Transmission Date: 20061208
  Serious: No
  Sender: FDA-Public Use
  Company Number: US-GLAXOSMITHKLINE-A0592486A

PATIENT
  Age: 51 Year
  Sex: Male

DRUGS (4)
  1. AVANDIA [Suspect]
     Route: 048
     Dates: start: 20060101
  2. METFORMIN [Suspect]
     Route: 065
  3. CRESTOR [Concomitant]
  4. AMARYL [Concomitant]

REACTIONS (3)
  - FEELING ABNORMAL [None]
  - MUSCLE SPASMS [None]
  - NAUSEA [None]
